FAERS Safety Report 8234751-8 (Version None)
Quarter: 2012Q1

REPORT INFORMATION
  Report Type: 
  Country: None (occurrence: None)
  Receive Date: 20120322
  Receipt Date: 20120309
  Transmission Date: 20120608
  Serious: Yes (Life-Threatening)
  Sender: FDA-Public Use
  Company Number: TCI2012A00716

PATIENT
  Age: 81 Year
  Sex: Male

DRUGS (6)
  1. JHARNAL D (TAMSULOSIN HYDROCHLORIDE) [Concomitant]
  2. ACTOS [Suspect]
     Indication: DIABETES MELLITUS
     Dosage: 30 MG (30 MG, 1 IN 1 D)
     Route: 048
     Dates: end: 20050404
  3. PURSENNID (SENNOSIDE A+B) [Concomitant]
  4. AMARYL [Concomitant]
  5. ZOLPIDEM TARTRATE [Concomitant]
  6. JANUVIA [Concomitant]

REACTIONS (3)
  - BLADDER CANCER [None]
  - HAEMOGLOBIN DECREASED [None]
  - OCCULT BLOOD POSITIVE [None]
